FAERS Safety Report 6293070-X (Version None)
Quarter: 2009Q3

REPORT INFORMATION
  Report Type: 
  Country: None (occurrence: None)
  Receive Date: 20090729
  Receipt Date: 20090720
  Transmission Date: 20100115
  Serious: Yes (Disabling)
  Sender: FDA-Public Use
  Company Number: ADR10012009

PATIENT
  Sex: Female

DRUGS (3)
  1. AMLODIPINE [Suspect]
     Indication: BLOOD PRESSURE
     Dosage: 1DF - 1/1DAY; ORAL
     Route: 048
     Dates: start: 20071020, end: 20071025
  2. OMEPRAZOLE [Concomitant]
  3. PROTHIADEN 25MG [Concomitant]

REACTIONS (5)
  - BALANCE DISORDER [None]
  - CHEST PAIN [None]
  - PAIN IN EXTREMITY [None]
  - TREMOR [None]
  - VISUAL ACUITY REDUCED [None]
